FAERS Safety Report 7796384-7 (Version None)
Quarter: 2011Q4

REPORT INFORMATION
  Report Type: 
  Country: None (occurrence: None)
  Receive Date: 20111005
  Receipt Date: 20110927
  Transmission Date: 20120403
  Serious: No
  Sender: FDA-Public Use
  Company Number: US-BIOGENIDEC-2011BI017127

PATIENT
  Sex: Female

DRUGS (1)
  1. TYSABRI [Suspect]
     Indication: MULTIPLE SCLEROSIS
     Route: 042
     Dates: start: 20080318

REACTIONS (9)
  - GENERAL SYMPTOM [None]
  - SPEECH DISORDER [None]
  - DRUG INEFFECTIVE [None]
  - ABASIA [None]
  - GAIT DISTURBANCE [None]
  - DEPRESSION [None]
  - MUSCULOSKELETAL DISORDER [None]
  - ASTHENIA [None]
  - POOR VENOUS ACCESS [None]
